FAERS Safety Report 7878375-0 (Version None)
Quarter: 2011Q4

REPORT INFORMATION
  Report Type: 
  Country: None (occurrence: None)
  Receive Date: 20111028
  Receipt Date: 20111017
  Transmission Date: 20120403
  Serious: Yes (Other)
  Sender: FDA-Public Use
  Company Number: TPA2011A06807

PATIENT
  Age: 82 Year
  Sex: Male
  Weight: 81.6475 kg

DRUGS (8)
  1. PRAVASTATIN [Concomitant]
  2. LOVAZA [Concomitant]
  3. BENAZEPRIL HYDROCHLORIDE [Concomitant]
  4. VITAMIN D [Concomitant]
  5. ACETAMINOPHEN [Concomitant]
  6. ACTOS [Suspect]
     Indication: TYPE 2 DIABETES MELLITUS
     Dosage: 15 MG, 1 IN 1 D, PER ORAL
     Route: 048
     Dates: start: 20050101, end: 20110916
  7. FINASTERIDE [Concomitant]
  8. ASPIRIN [Concomitant]

REACTIONS (2)
  - ABDOMINAL PAIN LOWER [None]
  - BLADDER CANCER [None]
